FAERS Safety Report 13215561 (Version 1)
Quarter: 2017Q1

REPORT INFORMATION
  Report Type: Spontaneous
  Country: US (occurrence: US)
  Receive Date: 20170210
  Receipt Date: 20170210
  Transmission Date: 20170428
  Serious: No
  Sender: FDA-Public Use
  Company Number: US-ROCHE-1797721

PATIENT
  Sex: Female

DRUGS (2)
  1. XOLAIR [Suspect]
     Active Substance: OMALIZUMAB
     Indication: CHRONIC OBSTRUCTIVE PULMONARY DISEASE
  2. XOLAIR [Suspect]
     Active Substance: OMALIZUMAB
     Indication: ASTHMA
     Route: 058
     Dates: start: 201604

REACTIONS (7)
  - Swelling face [Recovered/Resolved]
  - Skin tightness [Recovered/Resolved]
  - Rash [Recovering/Resolving]
  - Asthenopia [Unknown]
  - Burning sensation [Unknown]
  - Pruritus [Recovered/Resolved]
  - Erythema [Recovered/Resolved]
